FAERS Safety Report 16571565 (Version 1)
Quarter: 2019Q3

REPORT INFORMATION
  Report Type: Spontaneous
  Country: CN (occurrence: CN)
  Receive Date: 20190715
  Receipt Date: 20190715
  Transmission Date: 20191004
  Serious: Yes (Other)
  Sender: FDA-Public Use
  Company Number: CN-PFIZER INC-2019296602

PATIENT
  Age: 63 Year
  Sex: Male
  Weight: 65 kg

DRUGS (1)
  1. LIPITOR [Suspect]
     Active Substance: ATORVASTATIN CALCIUM
     Indication: HYPERLIPIDAEMIA
     Dosage: 1 DF, 1X/DAY (QN EVERY NIGHT)
     Route: 048
     Dates: start: 20190528, end: 20190530

REACTIONS (3)
  - Choking [Unknown]
  - Dysphonia [Unknown]
  - Cough [Recovered/Resolved]

NARRATIVE: CASE EVENT DATE: 20190528
